FAERS Safety Report 7169824-4 (Version None)
Quarter: 2010Q4

REPORT INFORMATION
  Report Type: 
  Country: None (occurrence: None)
  Receive Date: 20101206
  Receipt Date: 20101122
  Transmission Date: 20110411
  Serious: Yes (Hospitalization)
  Sender: FDA-Public Use
  Company Number: DSA_44418_2010

PATIENT
  Age: 50 Year
  Sex: Female

DRUGS (1)
  1. BUPROPION HCL [Suspect]
     Indication: DEPRESSION
     Dosage: 300 MG DAILY, ORAL
     Route: 048
     Dates: start: 20090709, end: 20101101

REACTIONS (2)
  - CONCOMITANT DISEASE AGGRAVATED [None]
  - RESTLESS LEGS SYNDROME [None]
